FAERS Safety Report 18171203 (Version 1)
Quarter: 2020Q3

REPORT INFORMATION
  Report Type: Spontaneous
  Country: DE (occurrence: DE)
  Receive Date: 20200819
  Receipt Date: 20200819
  Transmission Date: 20201103
  Serious: Yes (Hospitalization, Other)
  Sender: FDA-Public Use
  Company Number: DE-PFIZER INC-2020319543

PATIENT
  Age: 84 Year
  Sex: Male

DRUGS (8)
  1. METAMIZOLE [Concomitant]
     Active Substance: METAMIZOLE
     Dosage: 500 MG, 1?1?1?0
     Route: 065
  2. XIPAMIDE [Suspect]
     Active Substance: XIPAMIDE
     Dosage: 20 MG, QD 0.5?0?0?0
     Route: 065
  3. TORASEMIDE [Suspect]
     Active Substance: TORSEMIDE
     Dosage: 20 MG, BID 1?1?0?0
     Route: 065
  4. BISOPROLOL [Concomitant]
     Active Substance: BISOPROLOL
     Dosage: 10 MG, 0.5?0?0.5?0
     Route: 065
  5. RAMIPRIL. [Suspect]
     Active Substance: RAMIPRIL
     Dosage: 2 MG, BID 1?0?1?0
     Route: 065
  6. PREGABALIN. [Concomitant]
     Active Substance: PREGABALIN
     Dosage: 75 MG, QD 0?0?1?0,
     Route: 065
  7. TRAMADOL. [Concomitant]
     Active Substance: TRAMADOL
     Dosage: 100 MG, QD 0?0?1?0
     Route: 065
  8. PHENPROCOUMON [Concomitant]
     Active Substance: PHENPROCOUMON
     Dosage: 3 MG
     Route: 065

REACTIONS (7)
  - General physical health deterioration [Unknown]
  - Drug level increased [Unknown]
  - Dyspnoea [Unknown]
  - International normalised ratio increased [Unknown]
  - Prothrombin time shortened [Unknown]
  - Renal impairment [Unknown]
  - Asthenia [Unknown]
